FAERS Safety Report 26078339 (Version 1)
Quarter: 2025Q4

REPORT INFORMATION
  Report Type: Spontaneous
  Country: US (occurrence: US)
  Receive Date: 20251122
  Receipt Date: 20251122
  Transmission Date: 20260117
  Serious: No
  Sender: SUNOVION
  Company Number: US-SMPA-2025SPA014140

PATIENT
  Sex: Male

DRUGS (1)
  1. ORGOVYX [Suspect]
     Active Substance: RELUGOLIX
     Indication: Product used for unknown indication
     Dosage: UNK
     Route: 048

REACTIONS (13)
  - Night sweats [Unknown]
  - Rash [Unknown]
  - Fatigue [Unknown]
  - Arthralgia [Unknown]
  - Hot flush [Unknown]
  - Asthenia [Unknown]
  - Liver disorder [Unknown]
  - Mood swings [Unknown]
  - Blood urine present [Unknown]
  - Paraesthesia [Unknown]
  - Bladder disorder [Unknown]
  - Muscle atrophy [Unknown]
  - Urinary tract infection [Unknown]
